FAERS Safety Report 6316148-0 (Version None)
Quarter: 2009Q3

REPORT INFORMATION
  Report Type: 
  Country: None (occurrence: None)
  Receive Date: 20090820
  Receipt Date: 20090810
  Transmission Date: 20100115
  Serious: Yes (Death, Other)
  Sender: FDA-Public Use
  Company Number: US-JNJFOC-20090600102

PATIENT
  Sex: Female

DRUGS (8)
  1. INTELENCE [Suspect]
     Indication: HIV INFECTION
     Route: 048
  2. RALTEGRAVIR [Suspect]
     Indication: HIV INFECTION
  3. TRUVADA [Concomitant]
     Indication: HIV INFECTION
  4. MOXIFLOXACIN HCL [Concomitant]
     Indication: PNEUMONIA
  5. FLUCONAZOLE [Concomitant]
     Indication: PROPHYLAXIS AGAINST HIV INFECTION
  6. DAPSONE [Concomitant]
     Indication: PROPHYLAXIS AGAINST HIV INFECTION
  7. AZITHROMYCIN [Concomitant]
     Indication: PROPHYLAXIS AGAINST HIV INFECTION
  8. PHENERGAN [Concomitant]
     Indication: NAUSEA

REACTIONS (2)
  - HEPATITIS FULMINANT [None]
  - HEPATORENAL FAILURE [None]
